FAERS Safety Report 8112018-6 (Version None)
Quarter: 2012Q1

REPORT INFORMATION
  Report Type: 
  Country: None (occurrence: None)
  Receive Date: 20120203
  Receipt Date: 20120131
  Transmission Date: 20120608
  Serious: Yes (Hospitalization)
  Sender: FDA-Public Use
  Company Number: US-PFIZER INC-2012019250

PATIENT
  Sex: Female
  Weight: 91.61 kg

DRUGS (10)
  1. LIPITOR [Suspect]
     Indication: HYPERLIPIDAEMIA
     Dosage: 80 MG, ONCE OHS
     Route: 048
     Dates: start: 20050101
  2. LIPITOR [Suspect]
     Dosage: UNK
     Route: 048
     Dates: start: 20050101
  3. COZAAR [Concomitant]
     Indication: HYPERTENSION
     Dosage: 100 MG, DAILY
     Route: 048
  4. ACETYLSALICYLIC ACID [Concomitant]
     Dosage: UNK
  5. COREG [Concomitant]
     Indication: CARDIAC DISORDER
  6. ACTOS [Concomitant]
     Indication: DIABETES MELLITUS
     Dosage: 30 MG, DAILY
  7. COREG [Concomitant]
     Indication: HYPERTENSION
     Dosage: 12.5 MG, 3X/DAY
     Route: 048
  8. PLAVIX [Concomitant]
     Dosage: UNK
  9. LANTUS [Concomitant]
     Indication: DIABETES MELLITUS
     Dosage: 15 IU, DAILY
  10. COUMADIN [Concomitant]
     Indication: DEEP VEIN THROMBOSIS
     Dosage: 7.5 AND 10 MG ALTERNATIVELY

REACTIONS (1)
  - MYOCARDIAL INFARCTION [None]
